FAERS Safety Report 9387098 (Version 5)
Quarter: 2013Q4

REPORT INFORMATION
  Report Type: Spontaneous
  Country: CH (occurrence: CH)
  Receive Date: 20130708
  Receipt Date: 20131008
  Transmission Date: 20140711
  Serious: Yes (Hospitalization)
  Sender: FDA-Public Use
  Company Number: PHHY2013CH070211

PATIENT
  Sex: Female

DRUGS (3)
  1. CO-AMOXICILLIN SANDOZ [Suspect]
     Indication: ANTIBIOTIC PROPHYLAXIS
     Dosage: 156.25 MG, TID
     Route: 048
     Dates: start: 20130619
  2. NOVALGIN [Concomitant]
     Dates: start: 20130618
  3. DAFALGAN [Concomitant]
     Dates: start: 20130618

REACTIONS (1)
  - Epistaxis [Recovering/Resolving]
